FAERS Safety Report 13652064 (Version 1)
Quarter: 2017Q2

REPORT INFORMATION
  Report Type: Spontaneous
  Country: US (occurrence: US)
  Receive Date: 20170614
  Receipt Date: 20170614
  Transmission Date: 20170830
  Serious: No
  Sender: FDA-Public Use
  Company Number: US-LEXICON PHARMACEUTICALS, INC-17-1606-00274

PATIENT
  Age: 59 Year
  Sex: Female

DRUGS (4)
  1. TELOTRISTAT ETHYL [Suspect]
     Active Substance: TELOTRISTAT ETHYL
     Indication: DIARRHOEA
     Route: 048
     Dates: start: 20170428
  2. PEPTAMEN 1.5 [Concomitant]
  3. VITAL 1.5 [Concomitant]
     Dates: start: 20170511
  4. CIPRO [Concomitant]
     Active Substance: CIPROFLOXACIN HYDROCHLORIDE
     Dates: start: 20170508, end: 20170514

REACTIONS (2)
  - Urinary tract infection [Not Recovered/Not Resolved]
  - Feeding intolerance [Unknown]

NARRATIVE: CASE EVENT DATE: 201705
